FAERS Safety Report 20855343 (Version 3)
Quarter: 2022Q2

REPORT INFORMATION
  Report Type: Spontaneous
  Country: US (occurrence: US)
  Receive Date: 20220520
  Receipt Date: 20220531
  Transmission Date: 20220721
  Serious: Yes (Other)
  Sender: FDA-Public Use
  Company Number: US-PFIZER INC-202200721709

PATIENT
  Age: 89 Year
  Sex: Female

DRUGS (3)
  1. DROPERIDOL [Interacting]
     Active Substance: DROPERIDOL
     Indication: Mental status changes
     Dosage: 1.25 MG
  2. DROPERIDOL [Interacting]
     Active Substance: DROPERIDOL
     Dosage: 5 MG
  3. OLANZAPINE [Interacting]
     Active Substance: OLANZAPINE
     Indication: Mental status changes
     Dosage: 10 MG

REACTIONS (4)
  - Drug interaction [Unknown]
  - Extrapyramidal disorder [Recovered/Resolved]
  - Ataxia [Recovered/Resolved]
  - Off label use [Unknown]
